FAERS Safety Report 4629718-2 (Version None)
Quarter: 2005Q2

REPORT INFORMATION
  Report Type: 
  Country: None (occurrence: None)
  Receive Date: 20050407
  Receipt Date: 20050318
  Transmission Date: 20051028
  Serious: Yes (Hospitalization)
  Sender: FDA-Public Use
  Company Number: FR_050306073

PATIENT
  Age: 74 Year
  Sex: Male

DRUGS (10)
  1. HUMALOG MIX 50/50 [Suspect]
     Indication: DIABETES MELLITUS INSULIN-DEPENDENT
     Dosage: 68 IU DAY
  2. HUMALOG [Suspect]
     Indication: DIABETES MELLITUS INSULIN-DEPENDENT
     Dosage: 56 IU/1 IN THE EVENING
  3. PRETERAX [Concomitant]
  4. PREVISCAN (FLUINDIONE) [Concomitant]
  5. CORDARONE [Concomitant]
  6. CARVEDILOL [Concomitant]
  7. LEVOTHYROXINE SODIUM [Concomitant]
  8. PRAVASTATIN [Concomitant]
  9. DOLIPRANE (PARACETAMOL) [Concomitant]
  10. MOVICOL [Concomitant]

REACTIONS (6)
  - BLOOD PRESSURE SYSTOLIC INCREASED [None]
  - BODY TEMPERATURE INCREASED [None]
  - DISTURBANCE IN ATTENTION [None]
  - HYPOGLYCAEMIA [None]
  - OVERDOSE [None]
  - OXYGEN SATURATION DECREASED [None]
